FAERS Safety Report 25751180 (Version 1)
Quarter: 2025Q3

REPORT INFORMATION
  Report Type: Spontaneous
  Country: US (occurrence: None)
  Receive Date: 20250830
  Receipt Date: 20250830
  Transmission Date: 20251020
  Serious: Yes (Hospitalization)
  Sender: FDA-CTU
  Company Number: None

PATIENT
  Age: 45 Year
  Sex: Male
  Weight: 101.24 kg

DRUGS (9)
  1. CYCLOPHOSPHAMIDE [Suspect]
     Active Substance: CYCLOPHOSPHAMIDE
     Dates: start: 20250627, end: 20250627
  2. CYTARABINE [Suspect]
     Active Substance: CYTARABINE
     Dates: start: 20250726, end: 20250726
  3. SPRYCEL [Suspect]
     Active Substance: DASATINIB
     Dates: start: 20250803, end: 20250803
  4. DEXAMETHASONE [Suspect]
     Active Substance: DEXAMETHASONE
     Dates: start: 20250705, end: 20250705
  5. DOXORUBICIN HYDROCHLORIDE [Suspect]
     Active Substance: DOXORUBICIN HYDROCHLORIDE
     Dates: start: 20250628, end: 20250628
  6. MESNA [Suspect]
     Active Substance: MESNA
     Dates: start: 20250628, end: 20250628
  7. METHOTREXATE [Suspect]
     Active Substance: METHOTREXATE
     Dates: start: 20250725, end: 20250725
  8. PREDNISONE [Suspect]
     Active Substance: PREDNISONE
     Dates: start: 20250624, end: 20250624
  9. VINCRISTINE SULFATE [Suspect]
     Active Substance: VINCRISTINE SULFATE
     Dates: start: 20250704, end: 20250704

REACTIONS (4)
  - Febrile neutropenia [None]
  - Pancytopenia [None]
  - Acute kidney injury [None]
  - Red blood cell transfusion [None]

NARRATIVE: CASE EVENT DATE: 20250803
